FAERS Safety Report 6093047-3 (Version None)
Quarter: 2009Q1

REPORT INFORMATION
  Report Type: 
  Country: None (occurrence: None)
  Receive Date: 20090224
  Receipt Date: 20090209
  Transmission Date: 20090719
  Serious: Yes (Other)
  Sender: FDA-Public Use
  Company Number: 2009S1002220

PATIENT
  Age: 34 Year
  Sex: Female

DRUGS (2)
  1. FLUOXETINE (FLUOXETINE) (FLUOXETINE) (20 MG) [Suspect]
     Indication: DRUG USE FOR UNKNOWN INDICATION
     Dosage: 20 MG; ORAL
     Route: 048
     Dates: start: 20050101
  2. RISPERDAL [Suspect]
     Indication: PSYCHOTIC DISORDER
     Dosage: 25 MG; INTRAMUSCULAR
     Route: 030
     Dates: start: 20070701, end: 20081101

REACTIONS (5)
  - DRUG INTERACTION [None]
  - HEADACHE [None]
  - HYPERPROLACTINAEMIA [None]
  - OPTIC NEURITIS [None]
  - VISION BLURRED [None]
